FAERS Safety Report 7211532-5 (Version None)
Quarter: 2011Q1

REPORT INFORMATION
  Report Type: 
  Country: None (occurrence: None)
  Receive Date: 20110105
  Receipt Date: 20101227
  Transmission Date: 20110831
  Serious: Yes (Hospitalization)
  Sender: FDA-Public Use
  Company Number: JP-ASTRAZENECA-2010SE50988

PATIENT
  Age: 70 Year
  Sex: Male
  Weight: 63 kg

DRUGS (12)
  1. HEPARIN SODIUM [Suspect]
     Dosage: 1A
     Route: 041
     Dates: start: 20101020, end: 20101023
  2. ATROPINE SULFATE HYDRATE [Concomitant]
     Indication: ANAESTHETIC PREMEDICATION
     Route: 030
     Dates: start: 20101020, end: 20101020
  3. PENTAZOCINE LACTATE [Concomitant]
     Indication: ANAESTHETIC PREMEDICATION
     Route: 030
     Dates: start: 20101020, end: 20101020
  4. DIPRIVAN [Suspect]
     Indication: INDUCTION OF ANAESTHESIA
     Route: 042
     Dates: start: 20101020, end: 20101020
  5. ATARAX [Concomitant]
     Dosage: 1A
     Route: 041
     Dates: start: 20101020, end: 20101102
  6. CEFAMEZIN [Suspect]
     Dosage: 2 G
     Route: 041
     Dates: start: 20101020, end: 20101023
  7. PHYSIO 140 [Concomitant]
     Dosage: DOSE UNKNOWN
     Route: 041
     Dates: start: 20101020, end: 20101020
  8. ATARAX [Concomitant]
     Indication: ANAESTHETIC PREMEDICATION
     Route: 030
     Dates: start: 20101020, end: 20101020
  9. DIGILANOGEN C [Suspect]
     Dosage: 1A
     Route: 041
     Dates: start: 20101021, end: 20101023
  10. BISOLVON [Concomitant]
     Dosage: 2A
     Route: 040
     Dates: start: 20101020, end: 20101023
  11. PENTAZOCINE LACTATE [Concomitant]
     Dosage: 1A
     Route: 041
     Dates: start: 20101020, end: 20101102
  12. POTACOL-R [Concomitant]
     Dosage: DOSE UNKNOWN
     Route: 041
     Dates: start: 20101020, end: 20101021

REACTIONS (1)
  - BLOOD BILIRUBIN INCREASED [None]
